FAERS Safety Report 19000451 (Version 1)
Quarter: 2021Q1

REPORT INFORMATION
  Report Type: Spontaneous
  Country: US (occurrence: US)
  Receive Date: 20210312
  Receipt Date: 20210312
  Transmission Date: 20210420
  Serious: No
  Sender: FDA-Public Use
  Company Number: US-BIOVITRUM-2021US2547

PATIENT
  Sex: Female
  Weight: 10 kg

DRUGS (4)
  1. SYNAGIS [Suspect]
     Active Substance: PALIVIZUMAB
     Indication: SPINAL MUSCULAR ATROPHY
     Route: 030
  2. SYNAGIS [Suspect]
     Active Substance: PALIVIZUMAB
     Indication: DYSPHAGIA
  3. SYNAGIS [Suspect]
     Active Substance: PALIVIZUMAB
     Indication: PSYCHOMOTOR SKILLS IMPAIRED
  4. EVRYSDI [Concomitant]
     Active Substance: RISDIPLAM

REACTIONS (2)
  - Weight increased [Unknown]
  - Off label use [Unknown]
